FAERS Safety Report 13842699 (Version 1)
Quarter: 2017Q3

REPORT INFORMATION
  Report Type: Spontaneous
  Country: IN (occurrence: IN)
  Receive Date: 20170808
  Receipt Date: 20170808
  Transmission Date: 20171127
  Serious: No
  Sender: FDA-Public Use
  Company Number: IN-LUPIN PHARMACEUTICALS INC.- E2B_00006603

PATIENT
  Age: 31 Year
  Sex: Male

DRUGS (3)
  1. BENADON [Concomitant]
     Active Substance: PYRIDOXINE HYDROCHLORIDE
     Indication: PRODUCT USED FOR UNKNOWN INDICATION
     Dosage: .5 DF,QD,
     Route: 065
     Dates: start: 201511
  2. R-CINEX [Concomitant]
     Active Substance: ISONIAZID\RIFAMPIN
     Indication: TUBERCULOSIS
     Dosage: 1 DF,QD,
     Route: 048
  3. COMBUTOL TAB UNCOATED 1 G [Suspect]
     Active Substance: ETHAMBUTOL HYDROCHLORIDE
     Indication: TUBERCULOSIS OF CENTRAL NERVOUS SYSTEM
     Dosage: 1 DF,QD,
     Route: 048
     Dates: start: 201603, end: 201610

REACTIONS (1)
  - Vision blurred [Not Recovered/Not Resolved]
